FAERS Safety Report 7508628-7 (Version None)
Quarter: 2011Q2

REPORT INFORMATION
  Report Type: 
  Country: None (occurrence: None)
  Receive Date: 20110527
  Receipt Date: 20110323
  Transmission Date: 20111010
  Serious: Yes (Hospitalization)
  Sender: FDA-Public Use
  Company Number: A0920604A

PATIENT
  Age: 11 Year
  Sex: Female
  Weight: 33.1 kg

DRUGS (2)
  1. FLOLAN [Suspect]
     Indication: PULMONARY ARTERIAL HYPERTENSION
     Route: 042
     Dates: start: 20080506
  2. ADCIRCA [Concomitant]

REACTIONS (1)
  - CHEST PAIN [None]
